FAERS Safety Report 9056397 (Version 2)
Quarter: 2013Q1

REPORT INFORMATION
  Report Type: Report from Study
  Country: DE (occurrence: DE)
  Receive Date: 20130204
  Receipt Date: 20130304
  Transmission Date: 20140127
  Serious: Yes (Hospitalization)
  Sender: FDA-Public Use
  Company Number: DE-ABBOTT-13P-062-1042199-00

PATIENT
  Age: 42 None
  Sex: Male
  Weight: 92 kg

DRUGS (3)
  1. HUMIRA [Suspect]
     Indication: PSORIASIS
     Route: 058
     Dates: start: 200801
  2. HUMIRA [Suspect]
     Route: 058
     Dates: start: 20100421
  3. L-THYROXIN [Concomitant]
     Indication: THYROID HORMONE REPLACEMENT THERAPY
     Dates: start: 1997

REACTIONS (2)
  - Tonsillitis [Recovered/Resolved]
  - Pharyngeal abscess [Recovered/Resolved]
